FAERS Safety Report 9747574 (Version 1)
Quarter: 2013Q4

REPORT INFORMATION
  Report Type: Spontaneous
  Country: US (occurrence: None)
  Receive Date: 20131211
  Receipt Date: 20131211
  Transmission Date: 20140711
  Serious: Yes (Death, Life-Threatening, Hospitalization)
  Sender: FDA-Public Use
  Company Number: None

PATIENT
  Age: 17 Year
  Sex: Male
  Weight: 40.37 kg

DRUGS (1)
  1. TAMIFLU [Suspect]
     Indication: INFLUENZA A VIRUS TEST POSITIVE
     Dates: start: 20131101, end: 20131102

REACTIONS (4)
  - Pneumonia staphylococcal [None]
  - Pneumonia aspiration [None]
  - Septic shock [None]
  - Loss of consciousness [None]
